FAERS Safety Report 23161413 (Version 10)
Quarter: 2024Q2

REPORT INFORMATION
  Report Type: Spontaneous
  Country: US (occurrence: US)
  Receive Date: 20231108
  Receipt Date: 20240621
  Transmission Date: 20240716
  Serious: Yes (Hospitalization, Disabling, Other)
  Sender: FDA-Public Use
  Company Number: US-GILEAD-2023-0650316

PATIENT
  Age: 63 Year
  Sex: Male
  Weight: 62.585 kg

DRUGS (14)
  1. LENACAPAVIR [Suspect]
     Active Substance: LENACAPAVIR
     Indication: HIV infection
     Dosage: 3 ML
     Route: 058
     Dates: start: 20230923
  2. LENACAPAVIR [Suspect]
     Active Substance: LENACAPAVIR
     Dosage: 600 MG
     Route: 058
     Dates: start: 20230927
  3. LENACAPAVIR [Suspect]
     Active Substance: LENACAPAVIR
     Dosage: 927 MG Q 6 MONTHS
     Route: 058
  4. SYMTUZA [Concomitant]
     Active Substance: COBICISTAT\DARUNAVIR\EMTRICITABINE\TENOFOVIR ALAFENAMIDE
     Dosage: UNK
     Dates: start: 20190326
  5. PIFELTRO [Concomitant]
     Active Substance: DORAVIRINE
     Dosage: UNK
     Dates: start: 20191018
  6. ACYCLOVIR [Concomitant]
     Active Substance: ACYCLOVIR
  7. DICYCLOMINE [Concomitant]
     Active Substance: DICYCLOMINE HYDROCHLORIDE
  8. ATROPINE\DIPHENOXYLATE [Concomitant]
     Active Substance: ATROPINE\DIPHENOXYLATE
  9. EZETIMIBE [Concomitant]
     Active Substance: EZETIMIBE
  10. KEYTRUDA [Concomitant]
     Active Substance: PEMBROLIZUMAB
  11. OMEPRAZOLE [Concomitant]
     Active Substance: DONEPEZIL HYDROCHLORIDE\OMEPRAZOLE\OMEPRAZOLE MAGNESIUM
  12. BIFIDOBACTERIUM ANIMALIS LACTIS [Concomitant]
     Active Substance: BIFIDOBACTERIUM ANIMALIS LACTIS
  13. SILDENAFIL [Concomitant]
     Active Substance: SILDENAFIL
  14. ZOLPIDEM [Concomitant]
     Active Substance: ZOLPIDEM TARTRATE

REACTIONS (12)
  - Injection site necrosis [Not Recovered/Not Resolved]
  - Impaired healing [Not Recovered/Not Resolved]
  - Debridement [Not Recovered/Not Resolved]
  - Injection site infection [Not Recovered/Not Resolved]
  - Staphylococcal infection [Not Recovered/Not Resolved]
  - Injection site swelling [Not Recovered/Not Resolved]
  - Injection site ulcer [Not Recovered/Not Resolved]
  - Dizziness [Not Recovered/Not Resolved]
  - Nausea [Not Recovered/Not Resolved]
  - Injection site erythema [Not Recovered/Not Resolved]
  - Injection site vesicles [Not Recovered/Not Resolved]
  - Wrong technique in product usage process [Recovered/Resolved]

NARRATIVE: CASE EVENT DATE: 20230923
